FAERS Safety Report 13268713 (Version 1)
Quarter: 2017Q1

REPORT INFORMATION
  Report Type: Spontaneous
  Country: FR (occurrence: FR)
  Receive Date: 20170224
  Receipt Date: 20170224
  Transmission Date: 20170428
  Serious: Yes (Hospitalization)
  Sender: FDA-Public Use
  Company Number: FR-SA-2017SA030796

PATIENT
  Age: 83 Year
  Sex: Male

DRUGS (8)
  1. METFORMIN [Concomitant]
     Active Substance: METFORMIN HYDROCHLORIDE
  2. HEPARIN CALCIUM [Concomitant]
     Active Substance: HEPARIN CALCIUM
  3. CO-APROVEL [Suspect]
     Active Substance: HYDROCHLOROTHIAZIDE\IRBESARTAN
     Route: 048
     Dates: end: 20170118
  4. FLUINDIONE [Concomitant]
     Active Substance: FLUINDIONE
     Dosage: AS PER INR
  5. DUTASTERIDE. [Concomitant]
     Active Substance: DUTASTERIDE
  6. AMOXICILLINE [Suspect]
     Active Substance: AMOXICILLIN
     Indication: ENTEROCOCCAL BACTERAEMIA
     Dosage: ROUTE- INTRAVENOUS INFUSION
     Route: 042
     Dates: start: 20170113, end: 20170118
  7. SILODOSIN [Concomitant]
     Active Substance: SILODOSIN
  8. ENOXAPARIN [Concomitant]
     Active Substance: ENOXAPARIN

REACTIONS (1)
  - Acute kidney injury [Recovering/Resolving]

NARRATIVE: CASE EVENT DATE: 20170118
